FAERS Safety Report 6320589-5 (Version None)
Quarter: 2009Q3

REPORT INFORMATION
  Report Type: 
  Country: None (occurrence: None)
  Receive Date: 20090822
  Receipt Date: 20081115
  Transmission Date: 20100115
  Serious: No
  Sender: FDA-Public Use
  Company Number: US-ABBOTT-08P-163-0487667-00

PATIENT
  Sex: Female

DRUGS (8)
  1. NIASPAN [Suspect]
     Indication: DRUG USE FOR UNKNOWN INDICATION
     Dates: start: 20081011, end: 20081101
  2. NIASPAN [Suspect]
     Dates: start: 20081101
  3. M.V.I. [Concomitant]
     Indication: DRUG USE FOR UNKNOWN INDICATION
  4. CEBETABS [Concomitant]
     Indication: DRUG USE FOR UNKNOWN INDICATION
  5. PAROXETINE HCL [Concomitant]
     Indication: DRUG USE FOR UNKNOWN INDICATION
     Route: 048
  6. ALPRAZOLAM [Concomitant]
     Indication: DRUG USE FOR UNKNOWN INDICATION
  7. ESTROGEN PATCH [Concomitant]
     Indication: DRUG USE FOR UNKNOWN INDICATION
     Route: 062
  8. PROGESTERONE [Concomitant]
     Indication: DRUG USE FOR UNKNOWN INDICATION

REACTIONS (2)
  - VISION BLURRED [None]
  - VISUAL FIELD TESTS ABNORMAL [None]
